FAERS Safety Report 25305173 (Version 1)
Quarter: 2025Q2

REPORT INFORMATION
  Report Type: Spontaneous
  Country: CN (occurrence: CN)
  Receive Date: 20250513
  Receipt Date: 20250513
  Transmission Date: 20250717
  Serious: Yes (Other)
  Sender: BAYER HEALTHCARE PHARMACEUTICALS INC.
  Company Number: CN-BAYER-2025A064234

PATIENT
  Age: 89 Year
  Sex: Male
  Weight: 60 kg

DRUGS (2)
  1. AVELOX [Suspect]
     Active Substance: MOXIFLOXACIN HYDROCHLORIDE
     Indication: Sepsis
     Dosage: 250 ML, QD
     Route: 041
     Dates: start: 20250414, end: 20250417
  2. AVELOX [Suspect]
     Active Substance: MOXIFLOXACIN HYDROCHLORIDE
     Indication: Anti-infective therapy

REACTIONS (4)
  - Epilepsy [Recovered/Resolved]
  - Muscle twitching [Recovered/Resolved]
  - Product prescribing issue [None]
  - Product use in unapproved indication [None]

NARRATIVE: CASE EVENT DATE: 20250414
